FAERS Safety Report 6156504-7 (Version None)
Quarter: 2009Q2

REPORT INFORMATION
  Report Type: 
  Country: None (occurrence: None)
  Receive Date: 20090416
  Receipt Date: 20081202
  Transmission Date: 20091009
  Serious: Yes (Other)
  Sender: FDA-Public Use
  Company Number: CA-ALLERGAN-0815638US

PATIENT
  Sex: Female

DRUGS (1)
  1. BOTOX [Suspect]
     Indication: HYPERTONIC BLADDER
     Dosage: 200 UNITS, SINGLE
     Route: 030

REACTIONS (3)
  - DRUG INEFFECTIVE [None]
  - INCONTINENCE [None]
  - URINARY RETENTION [None]
